FAERS Safety Report 10012216 (Version 1)
Quarter: 2014Q1

REPORT INFORMATION
  Report Type: Spontaneous
  Country: US (occurrence: None)
  Receive Date: 20140312
  Receipt Date: 20140312
  Transmission Date: 20141002
  Serious: Yes (Other)
  Sender: FDA-Public Use
  Company Number: ADR-2014-00385

PATIENT
  Age: 67 Year
  Sex: Male

DRUGS (2)
  1. BACLOFEN [Suspect]
     Indication: POST LAMINECTOMY SYNDROME
  2. DILAUDID [Suspect]
     Dosage: 6.610 MG/DAY

REACTIONS (3)
  - Syncope [None]
  - Fall [None]
  - Acute myocardial infarction [None]
